FAERS Safety Report 11992268 (Version 1)
Quarter: 2016Q1

REPORT INFORMATION
  Report Type: Spontaneous
  Country: US (occurrence: US)
  Receive Date: 20160203
  Receipt Date: 20160203
  Transmission Date: 20160526
  Serious: No
  Sender: FDA-Public Use
  Company Number: US-JNJFOC-20151223874

PATIENT
  Age: 8 Year
  Sex: Female
  Weight: 31.75 kg

DRUGS (1)
  1. CHILDRENS TYLENOL [Suspect]
     Active Substance: ACETAMINOPHEN
     Indication: OROPHARYNGEAL PAIN
     Dosage: 2 TSP EVERY 8 HOURS
     Route: 048
     Dates: start: 20151220, end: 20151223

REACTIONS (3)
  - Inappropriate schedule of drug administration [Recovering/Resolving]
  - Reaction to food colouring [Recovering/Resolving]
  - Rash generalised [Recovering/Resolving]

NARRATIVE: CASE EVENT DATE: 20151222
